FAERS Safety Report 13213160 (Version 2)
Quarter: 2018Q1

REPORT INFORMATION
  Report Type: Spontaneous
  Country: US (occurrence: US)
  Receive Date: 20170209
  Receipt Date: 20180116
  Transmission Date: 20180508
  Serious: No
  Sender: FDA-Public Use
  Company Number: US-ALLERGAN-1674425US

PATIENT
  Age: 58 Year
  Sex: Female
  Weight: 48.53 kg

DRUGS (3)
  1. BOTOX [Suspect]
     Active Substance: ONABOTULINUMTOXINA
     Indication: MIGRAINE
     Dosage: UNKNOWN, SINGLE
     Route: 030
     Dates: start: 20160712, end: 20160712
  2. BOTOX [Suspect]
     Active Substance: ONABOTULINUMTOXINA
     Dosage: UNKNOWN, SINGLE
     Route: 030
     Dates: start: 20161011, end: 20161011
  3. CORGARD [Concomitant]
     Active Substance: NADOLOL
     Indication: HYPERTENSION
     Dosage: 60 MG, BID
     Route: 048

REACTIONS (5)
  - Colitis [Unknown]
  - Weight decreased [Unknown]
  - Fatigue [Recovered/Resolved]
  - Diarrhoea [Unknown]
  - Clostridium difficile infection [Unknown]

NARRATIVE: CASE EVENT DATE: 201607
